FAERS Safety Report 7655959-6 (Version None)
Quarter: 2011Q3

REPORT INFORMATION
  Report Type: 
  Country: None (occurrence: None)
  Receive Date: 20110804
  Receipt Date: 20110728
  Transmission Date: 20111222
  Serious: Yes (Hospitalization)
  Sender: FDA-Public Use
  Company Number: NL-ROCHE-718265

PATIENT
  Weight: 83 kg

DRUGS (5)
  1. FUROSEMIDE [Concomitant]
     Route: 048
     Dates: start: 20100725, end: 20100729
  2. CAPECITABINE [Suspect]
     Indication: GASTRIC CANCER
     Dosage: DATE OF LAST DOSE PRIOR TO SAE: 21 JULY 2010
     Route: 065
     Dates: start: 20100721, end: 20100729
  3. EPIRUBICIN [Suspect]
     Indication: GASTRIC CANCER
     Dosage: DATE OF LAST DOSE PRIOR TO SAE: 21 JULY 2010
     Route: 065
     Dates: start: 20100721, end: 20100729
  4. HYDROCHLOROTHIAZIDE [Concomitant]
     Route: 048
  5. CYCLOPHOSPHAMIDE [Suspect]
     Indication: GASTRIC CANCER
     Dosage: DATE OF LAST DOSE PRIOR TO SAE: 21 JULY 2010
     Route: 065
     Dates: start: 20100721, end: 20100729

REACTIONS (2)
  - HALLUCINATION, VISUAL [None]
  - HYPONATRAEMIA [None]
